FAERS Safety Report 10151328 (Version 1)
Quarter: 2014Q2

REPORT INFORMATION
  Report Type: Spontaneous
  Country: US (occurrence: US)
  Receive Date: 20140502
  Receipt Date: 20140502
  Transmission Date: 20141212
  Serious: No
  Sender: FDA-Public Use
  Company Number: US-ASTRAZENECA-2013SE63924

PATIENT
  Sex: Female

DRUGS (4)
  1. PRILOSEC OTC [Suspect]
     Indication: NAUSEA
     Route: 048
  2. PRILOSEC OTC [Suspect]
     Indication: GASTROINTESTINAL DISORDER
     Route: 048
  3. PRILOSEC OTC [Suspect]
     Indication: DYSPEPSIA
     Route: 048
  4. PREDNISONE [Concomitant]

REACTIONS (5)
  - Lip dry [Unknown]
  - Tongue disorder [Unknown]
  - Dry mouth [Unknown]
  - Incorrect drug administration duration [Unknown]
  - Off label use [Unknown]
